FAERS Safety Report 8654915 (Version 2)
Quarter: 2013Q1

REPORT INFORMATION
  Report Type: Report from Study
  Country: RS (occurrence: RS)
  Receive Date: 20120709
  Receipt Date: 20130328
  Transmission Date: 20140127
  Serious: Yes (Death)
  Sender: FDA-Public Use
  Company Number: RS-ROCHE-1084920

PATIENT
  Age: 67 Year
  Sex: Female
  Weight: 75 kg

DRUGS (3)
  1. BEVACIZUMAB [Suspect]
     Indication: COLORECTAL CANCER METASTATIC
     Route: 042
     Dates: start: 20120307, end: 20120626
  2. CAPECITABINE [Suspect]
     Indication: COLORECTAL CANCER METASTATIC
     Route: 048
     Dates: start: 20120612, end: 20120626
  3. OXALIPLATIN [Suspect]
     Indication: COLORECTAL CANCER METASTATIC
     Route: 042
     Dates: start: 20120305, end: 20120626

REACTIONS (6)
  - Diarrhoea [Fatal]
  - Fatigue [Fatal]
  - Body temperature increased [Fatal]
  - Abdominal pain [Fatal]
  - Renal failure acute [Fatal]
  - Diarrhoea [Fatal]
